FAERS Safety Report 7217771-1 (Version None)
Quarter: 2011Q1

REPORT INFORMATION
  Report Type: 
  Country: None (occurrence: None)
  Receive Date: 20110110
  Receipt Date: 20101230
  Transmission Date: 20110831
  Serious: Yes (Other)
  Sender: FDA-Public Use
  Company Number: PHHY2010FR89648

PATIENT
  Sex: Male

DRUGS (2)
  1. LEXOMIL [Concomitant]
     Dosage: 6 MG, QD
     Route: 048
     Dates: start: 20101012
  2. LEPONEX [Suspect]
     Indication: SCHIZOPHRENIA
     Dosage: 100 MG, TID
     Route: 048
     Dates: start: 20101012, end: 20101030

REACTIONS (5)
  - SINUS TACHYCARDIA [None]
  - CHEST PAIN [None]
  - CARDIAC DISORDER [None]
  - ELECTROCARDIOGRAM REPOLARISATION ABNORMALITY [None]
  - CARDIOMYOPATHY [None]
